FAERS Safety Report 12614716 (Version 1)
Quarter: 2016Q3

REPORT INFORMATION
  Report Type: Other
  Country: US (occurrence: US)
  Receive Date: 20160802
  Receipt Date: 20160802
  Transmission Date: 20161109
  Serious: Yes (Hospitalization)
  Sender: FDA-Public Use
  Company Number: US-JIANGSU HENGRUI MEDICINE CO., LTD.-1055757

PATIENT
  Age: 74 Year
  Sex: Female
  Weight: 54.27 kg

DRUGS (8)
  1. PALONOSETRON [Concomitant]
     Active Substance: PALONOSETRON
     Dates: start: 20160628
  2. ATROPINE. [Concomitant]
     Active Substance: ATROPINE
     Dates: start: 20160628
  3. MAGNESIUM SULFATE. [Concomitant]
     Active Substance: MAGNESIUM SULFATE
     Dates: start: 20160628
  4. IRINOTECAN HYDROCHLORIDE. [Concomitant]
     Active Substance: IRINOTECAN HYDROCHLORIDE
     Dates: start: 20160628
  5. FLUOROURACIL. [Concomitant]
     Active Substance: FLUOROURACIL
     Dates: start: 20160628
  6. EMEND [Concomitant]
     Active Substance: APREPITANT
     Dates: start: 20160628
  7. OXALIPLATIN. [Suspect]
     Active Substance: OXALIPLATIN
     Indication: PANCREATIC CARCINOMA
     Route: 042
     Dates: start: 20160628
  8. DEXAMETHASONE. [Concomitant]
     Active Substance: DEXAMETHASONE
     Dates: start: 20160628

REACTIONS (3)
  - Dyspnoea [Recovered/Resolved]
  - Stridor [None]
  - Anxiety [None]

NARRATIVE: CASE EVENT DATE: 20160628
